FAERS Safety Report 8590229-3 (Version None)
Quarter: 2012Q3

REPORT INFORMATION
  Report Type: 
  Country: None (occurrence: None)
  Receive Date: 20120813
  Receipt Date: 19950919
  Transmission Date: 20120928
  Serious: Yes (Hospitalization)
  Sender: FDA-Public Use
  Company Number: US-ROCHE-1100424

PATIENT
  Sex: Female

DRUGS (12)
  1. VASOTEC [Concomitant]
  2. ASPIRIN [Concomitant]
  3. PEPCID [Concomitant]
  4. LOPRESSOR [Concomitant]
  5. VALIUM [Concomitant]
  6. POTASSIUM CHLORIDE [Concomitant]
  7. DARVOCET [Concomitant]
  8. INAPSINE [Concomitant]
  9. MAGNESIUM SULFATE [Concomitant]
     Dosage: 10 CC
  10. ACTIVASE [Suspect]
     Indication: MYOCARDIAL INFARCTION
  11. MORPHINE [Concomitant]
  12. HEPARIN [Concomitant]

REACTIONS (1)
  - PAIN [None]
